FAERS Safety Report 6463099-7 (Version None)
Quarter: 2009Q4

REPORT INFORMATION
  Report Type: 
  Country: None (occurrence: None)
  Receive Date: 20091130
  Receipt Date: 20091117
  Transmission Date: 20100525
  Serious: Yes (Other)
  Sender: FDA-Public Use
  Company Number: IT-ELI_LILLY_AND_COMPANY-IT200911004553

PATIENT
  Sex: Male

DRUGS (2)
  1. STRATTERA [Suspect]
     Indication: ATTENTION DEFICIT/HYPERACTIVITY DISORDER
     Dosage: 40 MG, DAILY (1/D)
     Route: 048
     Dates: start: 20080424, end: 20081027
  2. DEPAKIN [Concomitant]
     Dosage: 600 MG, UNKNOWN
     Route: 048
     Dates: start: 20060913

REACTIONS (3)
  - ABDOMINAL PAIN [None]
  - PALLOR [None]
  - TACHYCARDIA [None]
